FAERS Safety Report 5412245-2 (Version None)
Quarter: 2007Q3

REPORT INFORMATION
  Report Type: 
  Country: None (occurrence: None)
  Receive Date: 20070713
  Receipt Date: 20070517
  Transmission Date: 20080115
  Serious: No
  Sender: FDA-Public Use
  Company Number: 2007SP001845

PATIENT
  Age: 22 Year
  Sex: Female
  Weight: 117.9352 kg

DRUGS (3)
  1. LUNESTA [Suspect]
     Indication: INSOMNIA
     Dosage: 3 MG;HS;ORAL
     Route: 048
     Dates: start: 20070514
  2. EFFEXOR [Concomitant]
  3. ZYRTEC [Concomitant]

REACTIONS (1)
  - INSOMNIA [None]
